FAERS Safety Report 25739418 (Version 1)
Quarter: 2025Q3

REPORT INFORMATION
  Report Type: Spontaneous
  Country: US (occurrence: US)
  Receive Date: 20250829
  Receipt Date: 20250829
  Transmission Date: 20251021
  Serious: Yes (Hospitalization, Other)
  Sender: STRIDES
  Company Number: US-STRIDES PHARMA UK LTD.-2025SP011006

PATIENT
  Age: 76 Year
  Sex: Male

DRUGS (5)
  1. PREDNISOLONE [Suspect]
     Active Substance: PREDNISOLONE
     Indication: Scleromalacia
     Route: 048
  2. MITOMYCIN C [Concomitant]
     Active Substance: MITOMYCIN
     Indication: Prophylaxis
     Route: 057
  3. MITOMYCIN C [Concomitant]
     Active Substance: MITOMYCIN
     Route: 057
  4. LIDOCAINE [Concomitant]
     Active Substance: LIDOCAINE
     Indication: Product used for unknown indication
     Route: 057
  5. EPINEPHRINE [Concomitant]
     Active Substance: EPINEPHRINE
     Indication: Product used for unknown indication
     Route: 057

REACTIONS (3)
  - Disease progression [Unknown]
  - Treatment failure [Unknown]
  - Off label use [Unknown]
